FAERS Safety Report 19357484 (Version 2)
Quarter: 2021Q3

REPORT INFORMATION
  Report Type: Spontaneous
  Country: DE (occurrence: DE)
  Receive Date: 20210601
  Receipt Date: 20210729
  Transmission Date: 20211014
  Serious: Yes (Other)
  Sender: FDA-Public Use
  Company Number: DE-ASTRAZENECA-2021A458951

PATIENT
  Age: 59 Year
  Sex: Female
  Weight: 65 kg

DRUGS (7)
  1. FULVESTRANT. [Suspect]
     Active Substance: FULVESTRANT
     Indication: BREAST CANCER METASTATIC
     Dosage: UNK
     Route: 065
     Dates: start: 202012
  2. CORTISONE [Concomitant]
     Active Substance: CORTISONE
     Indication: PRODUCT USED FOR UNKNOWN INDICATION
     Dosage: UNK (STARTED ON AN UNKNOWN DATE IN 2021)
  3. KISQALI [Suspect]
     Active Substance: RIBOCICLIB
     Indication: BREAST CANCER METASTATIC
     Route: 065
     Dates: start: 20201221, end: 20210422
  4. CALCIMAGON D3 [Concomitant]
     Active Substance: CALCIUM\CHOLECALCIFEROL
     Indication: OSTEOPOROSIS PROPHYLAXIS
     Dosage: 500 MG/ 400 I. U
     Route: 048
     Dates: start: 20210506
  5. CORTISONE [Concomitant]
     Active Substance: CORTISONE
     Indication: PRODUCT USED FOR UNKNOWN INDICATION
     Dosage: 70.0MG UNKNOWN
     Route: 065
     Dates: start: 20210506
  6. FULVESTRANT. [Suspect]
     Active Substance: FULVESTRANT
     Indication: BREAST CANCER METASTATIC
     Route: 065
     Dates: start: 20201204, end: 2021
  7. PANTOPRAZOLE [Concomitant]
     Active Substance: PANTOPRAZOLE
     Indication: ABDOMINAL DISCOMFORT
     Route: 048
     Dates: start: 20210506

REACTIONS (8)
  - Alanine aminotransferase increased [Recovering/Resolving]
  - Hepatobiliary disease [Recovering/Resolving]
  - Gamma-glutamyltransferase increased [Recovering/Resolving]
  - Aspartate aminotransferase increased [Recovering/Resolving]
  - Fatigue [Recovering/Resolving]
  - Blood bilirubin increased [Recovering/Resolving]
  - Liver function test increased [Not Recovered/Not Resolved]
  - Blood alkaline phosphatase increased [Recovering/Resolving]

NARRATIVE: CASE EVENT DATE: 202104
